FAERS Safety Report 5065009-6 (Version None)
Quarter: 2006Q3

REPORT INFORMATION
  Report Type: 
  Country: None (occurrence: None)
  Receive Date: 20060725
  Receipt Date: 20060713
  Transmission Date: 20061208
  Serious: Yes (Death, Hospitalization)
  Sender: FDA-Public Use
  Company Number: HQWYE882913JUL06

PATIENT
  Age: 52 Year
  Sex: Male

DRUGS (7)
  1. PANTOPRAZOLE SODIUM [Suspect]
     Dosage: 40 MG 1X PER 1 DAY
     Route: 048
     Dates: start: 20060401, end: 20060520
  2. INSULIN [Concomitant]
  3. UNSPECIFIED ANTIDIABETIC AGENT [Concomitant]
  4. SOLOMET (METHYLPREDNISLONE) [Concomitant]
  5. SPIRESIS (SPIRONOLACTONE) [Concomitant]
  6. CALCICHEW (CALCIUM CARBONATE) [Concomitant]
  7. LEVOLAC (LACTULOSE) [Concomitant]

REACTIONS (10)
  - ECZEMA [None]
  - GASTROINTESTINAL DISORDER [None]
  - HEPATOCELLULAR DAMAGE [None]
  - HYPOTENSION [None]
  - MULTI-ORGAN DISORDER [None]
  - RENAL FAILURE [None]
  - SEPTIC SHOCK [None]
  - STAPHYLOCOCCAL SEPSIS [None]
  - THROMBOCYTOPENIA [None]
  - TOXIC EPIDERMAL NECROLYSIS [None]
